FAERS Safety Report 5762343-9 (Version None)
Quarter: 2008Q2

REPORT INFORMATION
  Report Type: 
  Country: None (occurrence: None)
  Receive Date: 20080609
  Receipt Date: 20080528
  Transmission Date: 20081010
  Serious: Yes (Other)
  Sender: FDA-Public Use
  Company Number: JP-NOVOPROD-273515

PATIENT
  Age: 67 Year
  Sex: Male
  Weight: 72 kg

DRUGS (9)
  1. LEVEMIR [Suspect]
     Indication: DIABETES MELLITUS
     Dosage: 4 IU, QD
     Route: 058
     Dates: start: 20080221, end: 20080306
  2. VOGLIBOSE [Concomitant]
     Indication: DIABETES MELLITUS
     Dosage: .9 MG, QD
     Route: 048
  3. AMARYL [Concomitant]
     Indication: DIABETES MELLITUS
     Dosage: 3 MG, QD
     Route: 048
  4. SCOPOLAMINE BUTYLB [Concomitant]
  5. LACTOMIN [Concomitant]
  6. AMLODIPINE BESYLATE [Concomitant]
  7. ASPIRIN [Concomitant]
     Indication: CEREBRAL INFARCTION
     Dosage: 81 MG, QD
     Route: 048
  8. FLUITRAN [Concomitant]
     Indication: HYPERTENSION
     Dosage: 2 MG, QD
     Route: 048
  9. BLOPRESS [Concomitant]
     Indication: HYPERTENSION
     Dosage: 8 MG, QD
     Route: 048

REACTIONS (1)
  - HEPATIC FUNCTION ABNORMAL [None]
